FAERS Safety Report 21570476 (Version 1)
Quarter: 2022Q4

REPORT INFORMATION
  Report Type: Spontaneous
  Country: US (occurrence: US)
  Receive Date: 20221109
  Receipt Date: 20221109
  Transmission Date: 20230112
  Serious: No
  Sender: FDA-Public Use
  Company Number: US-BAUSCH-BL-2022-024715

PATIENT
  Age: 61 Year
  Sex: Female

DRUGS (5)
  1. XIFAXAN [Suspect]
     Active Substance: RIFAXIMIN
     Indication: Product used for unknown indication
     Route: 065
  2. GABAPENTIN [Concomitant]
     Active Substance: GABAPENTIN
     Indication: Pain in extremity
  3. GABAPENTIN [Concomitant]
     Active Substance: GABAPENTIN
     Indication: Neuralgia
  4. GABAPENTIN [Concomitant]
     Active Substance: GABAPENTIN
     Indication: Back pain
  5. TREPROSTINIL [Concomitant]
     Active Substance: TREPROSTINIL
     Indication: Pulmonary hypertension
     Dosage: 2.5 MG/ML  47 NG/KG/MIN FREQUENCY: CONTINUOUS, TREPROSTINIL MDV
     Route: 042
     Dates: start: 20221005

REACTIONS (1)
  - Gastric disorder [Not Recovered/Not Resolved]
